FAERS Safety Report 11650537 (Version 2)
Quarter: 2015Q4

REPORT INFORMATION
  Report Type: Report from Study
  Country: MX (occurrence: MX)
  Receive Date: 20151021
  Receipt Date: 20151023
  Transmission Date: 20160304
  Serious: Yes (Death)
  Sender: FDA-Public Use
  Company Number: PHHY2015MX135588

PATIENT
  Age: 79 Year
  Sex: Male

DRUGS (2)
  1. ONBREZ BREEZHALER [Suspect]
     Active Substance: INDACATEROL
     Indication: BRONCHITIS
  2. ONBREZ BREEZHALER [Suspect]
     Active Substance: INDACATEROL
     Indication: ASTHMA
     Dosage: 300 UG, UNK
     Route: 065
     Dates: end: 20150926

REACTIONS (2)
  - Off label use [Unknown]
  - Infarction [Fatal]

NARRATIVE: CASE EVENT DATE: 20150927
